FAERS Safety Report 6378072-7 (Version None)
Quarter: 2009Q3

REPORT INFORMATION
  Report Type: 
  Country: None (occurrence: None)
  Receive Date: 20090925
  Receipt Date: 20090918
  Transmission Date: 20100115
  Serious: Yes (Death, Hospitalization)
  Sender: FDA-Public Use
  Company Number: BR-ABBOTT-09P-020-0501492-00

PATIENT
  Sex: Female
  Weight: 86 kg

DRUGS (2)
  1. HUMIRA [Suspect]
     Indication: RHEUMATOID ARTHRITIS
     Route: 058
     Dates: start: 20080208, end: 20080901
  2. UNKNOWN [Concomitant]
     Indication: SLEEP DISORDER THERAPY

REACTIONS (13)
  - BRONCHOSPASM [None]
  - DIABETES MELLITUS [None]
  - DYSPNOEA [None]
  - FATIGUE [None]
  - INFECTION [None]
  - LUNG INFECTION [None]
  - MUCOSAL INFLAMMATION [None]
  - MULTI-ORGAN FAILURE [None]
  - OEDEMA PERIPHERAL [None]
  - RENAL DISORDER [None]
  - RESPIRATION ABNORMAL [None]
  - RHEUMATOID ARTHRITIS [None]
  - SEPSIS [None]
